FAERS Safety Report 7030278-X (Version None)
Quarter: 2010Q4

REPORT INFORMATION
  Report Type: 
  Country: None (occurrence: None)
  Receive Date: 20101006
  Receipt Date: 20100928
  Transmission Date: 20110411
  Serious: Yes (Other)
  Sender: FDA-Public Use
  Company Number: CH-SANOFI-AVENTIS-2010SA058522

PATIENT
  Age: 52 Year
  Sex: Female
  Weight: 58 kg

DRUGS (3)
  1. LANTUS OPTISET [Suspect]
  2. OPTISET [Interacting]
  3. JARSIN [Interacting]

REACTIONS (3)
  - DIABETIC COMPLICATION [None]
  - DRUG INTERACTION [None]
  - HYPOGLYCAEMIA [None]
